FAERS Safety Report 6620148-0 (Version None)
Quarter: 2010Q1

REPORT INFORMATION
  Report Type: 
  Country: None (occurrence: None)
  Receive Date: 20100309
  Receipt Date: 20100226
  Transmission Date: 20100710
  Serious: Yes (Hospitalization, Other)
  Sender: FDA-Public Use
  Company Number: JP-ELI_LILLY_AND_COMPANY-JP201002007468

PATIENT
  Age: 65 Year
  Sex: Female

DRUGS (3)
  1. ALIMTA [Suspect]
     Dosage: UNK, OTHER
     Route: 042
     Dates: start: 20100203
  2. PANVITAN [Concomitant]
     Dosage: 1 G, DAILY (1/D)
     Route: 048
     Dates: start: 20100114
  3. METHYCOBAL [Concomitant]
     Dosage: 1 MG, OTHER
     Route: 030
     Dates: start: 20100114

REACTIONS (4)
  - DISSEMINATED INTRAVASCULAR COAGULATION [None]
  - GRANULOCYTE COUNT DECREASED [None]
  - INFECTION [None]
  - RASH [None]
